FAERS Safety Report 12266839 (Version 1)
Quarter: 2016Q2

REPORT INFORMATION
  Report Type: Spontaneous
  Country: None (occurrence: None)
  Receive Date: 20160413
  Receipt Date: 20160413
  Transmission Date: 20160815
  Serious: Yes (Life-Threatening, Hospitalization, Other)
  Sender: FDA-Public Use
  Company Number: None

PATIENT
  Age: 62 Year
  Sex: Female
  Weight: 169.1 kg

DRUGS (9)
  1. RISPERODONE [Concomitant]
  2. LATUDA [Concomitant]
     Active Substance: LURASIDONE HYDROCHLORIDE
  3. PROTANDIM [Concomitant]
     Active Substance: DIETARY SUPPLEMENT
  4. LIQUID LITHIUM [Concomitant]
  5. LITHIUM. [Suspect]
     Active Substance: LITHIUM
     Indication: CONCUSSION
     Dosage: 2 TEASPOONS TWICE DAILY BY MOUTH
     Route: 048
     Dates: start: 20160226
  6. MAGNESIUM CITRATE. [Concomitant]
     Active Substance: MAGNESIUM CITRATE
  7. LITHIUM. [Suspect]
     Active Substance: LITHIUM
     Indication: BIPOLAR DISORDER
     Dosage: 2 TEASPOONS TWICE DAILY BY MOUTH
     Route: 048
     Dates: start: 20160226
  8. L ARGININE [Concomitant]
     Active Substance: ARGININE
  9. LITHIUM. [Suspect]
     Active Substance: LITHIUM
     Indication: PSYCHOTIC DISORDER
     Dosage: 2 TEASPOONS TWICE DAILY BY MOUTH
     Route: 048
     Dates: start: 20160226

REACTIONS (2)
  - Foreign body [None]
  - Mallory-Weiss syndrome [None]

NARRATIVE: CASE EVENT DATE: 20160330
